FAERS Safety Report 20697058 (Version 5)
Quarter: 2022Q2

REPORT INFORMATION
  Report Type: Report from Study
  Country: TW (occurrence: TW)
  Receive Date: 20220411
  Receipt Date: 20220621
  Transmission Date: 20220721
  Serious: Yes (Hospitalization, Other)
  Sender: FDA-Public Use
  Company Number: TW-ONO-2022TW008452

PATIENT
  Sex: Male
  Weight: 69.2 kg

DRUGS (47)
  1. GIMERACIL\OTERACIL\TEGAFUR [Suspect]
     Active Substance: GIMERACIL\OTERACIL\TEGAFUR
     Indication: Gastric cancer
     Dosage: ON 21-JAN-2022 ONWORDS THE SUBJECT RECEIVED 50 MG/M2 OF STUDY DRUG?FROM 18-MAR-2022 THE SUJECT RECEI
     Route: 048
     Dates: start: 20211209
  2. OXALIPLATIN [Suspect]
     Active Substance: OXALIPLATIN
     Indication: Gastric cancer
     Dosage: ON 21-JAN-2022--RECEIVED 235.3 MG/M2?MOST RECENT DOSE ON 18-MAR-2022
     Route: 042
     Dates: start: 20211209
  3. ACETAMINOPHEN [Concomitant]
     Active Substance: ACETAMINOPHEN
     Indication: Pyrexia
     Dosage: 2000 MG
     Route: 065
     Dates: start: 20220110, end: 20220112
  4. LOSARTAN POTASSIUM [Concomitant]
     Active Substance: LOSARTAN POTASSIUM
     Indication: Hypertension
     Dosage: 25 MG
     Route: 065
  5. LOSARTAN POTASSIUM [Concomitant]
     Active Substance: LOSARTAN POTASSIUM
     Dosage: 25 MG
     Route: 065
  6. BETAMETHASONE SODIUM PHOSPHATE [Concomitant]
     Active Substance: BETAMETHASONE SODIUM PHOSPHATE
     Indication: Product used for unknown indication
     Dosage: 4 MG
     Route: 065
     Dates: start: 20211209, end: 20211209
  7. BETAMETHASONE SODIUM PHOSPHATE [Concomitant]
     Active Substance: BETAMETHASONE SODIUM PHOSPHATE
     Dosage: 4 MG
     Route: 065
     Dates: start: 20211230, end: 20211230
  8. BETAMETHASONE SODIUM PHOSPHATE [Concomitant]
     Active Substance: BETAMETHASONE SODIUM PHOSPHATE
     Dosage: 4 MG
     Route: 065
     Dates: start: 20220121, end: 20220121
  9. GRANISETRON HYDROCHLORIDE [Concomitant]
     Active Substance: GRANISETRON HYDROCHLORIDE
     Indication: Product used for unknown indication
     Dosage: 3 MG
     Route: 065
     Dates: start: 20211209, end: 20211209
  10. GRANISETRON HYDROCHLORIDE [Concomitant]
     Active Substance: GRANISETRON HYDROCHLORIDE
     Dosage: 3 MG
     Route: 065
     Dates: start: 20211230, end: 20211230
  11. GRANISETRON HYDROCHLORIDE [Concomitant]
     Active Substance: GRANISETRON HYDROCHLORIDE
     Dosage: 3 MG
     Route: 065
     Dates: start: 20220121, end: 20220121
  12. DIPHENHYDRAMINE HYDROCHLORIDE [Concomitant]
     Active Substance: DIPHENHYDRAMINE HYDROCHLORIDE
     Indication: Product used for unknown indication
     Dosage: 30 MG
     Route: 065
     Dates: start: 20211209, end: 20211209
  13. DIPHENHYDRAMINE HYDROCHLORIDE [Concomitant]
     Active Substance: DIPHENHYDRAMINE HYDROCHLORIDE
     Dosage: 30 MG
     Route: 065
     Dates: start: 20211230, end: 20211230
  14. DIPHENHYDRAMINE HYDROCHLORIDE [Concomitant]
     Active Substance: DIPHENHYDRAMINE HYDROCHLORIDE
     Dosage: 30 MG
     Route: 065
     Dates: start: 20220121, end: 20220121
  15. DIPHENHYDRAMINE HYDROCHLORIDE [Concomitant]
     Active Substance: DIPHENHYDRAMINE HYDROCHLORIDE
     Dosage: 30 MG
     Route: 065
     Dates: start: 20220225, end: 20220225
  16. DIPHENHYDRAMINE HYDROCHLORIDE [Concomitant]
     Active Substance: DIPHENHYDRAMINE HYDROCHLORIDE
     Dosage: 30 MG
     Route: 065
     Dates: start: 20220318, end: 20220318
  17. MOSAPRIDE CITRATE DIHYDRATE [Concomitant]
     Active Substance: MOSAPRIDE CITRATE DIHYDRATE
     Indication: Gastric cancer
     Dosage: 15 MG
     Route: 065
  18. MOSAPRIDE CITRATE DIHYDRATE [Concomitant]
     Active Substance: MOSAPRIDE CITRATE DIHYDRATE
     Dosage: 15 MG
     Route: 065
  19. DOLCOL [Concomitant]
     Indication: Urinary tract infection
     Dosage: 500 MG
     Route: 065
     Dates: start: 20220124, end: 20220131
  20. AMINO ACIDS\DEXTROSE\ELECTROLYTES NOS\VITAMINS [Concomitant]
     Active Substance: AMINO ACIDS\DEXTROSE\ELECTROLYTES NOS\VITAMINS
     Indication: Blood creatinine increased
     Dosage: 1000 MILLILITER
     Route: 065
     Dates: start: 20220218, end: 20220218
  21. FEXOFENADINE HCL [Concomitant]
     Active Substance: FEXOFENADINE HYDROCHLORIDE
     Indication: Rash maculo-papular
     Dosage: 120 MG
     Route: 065
     Dates: start: 20220224
  22. FEXOFENADINE HCL [Concomitant]
     Active Substance: FEXOFENADINE HYDROCHLORIDE
     Indication: Eczema
  23. RABEPRAZOLE SODIUM [Concomitant]
     Active Substance: RABEPRAZOLE SODIUM
     Indication: Gastric cancer
     Dosage: 20 MG
     Route: 065
  24. RABEPRAZOLE SODIUM [Concomitant]
     Active Substance: RABEPRAZOLE SODIUM
     Dosage: 20 MG
     Route: 065
  25. LORAZEPAM [Concomitant]
     Active Substance: LORAZEPAM
     Indication: Insomnia
     Dosage: 0.5 MG
     Route: 065
  26. LORAZEPAM [Concomitant]
     Active Substance: LORAZEPAM
     Dosage: 0.5 MG
     Route: 065
  27. BISACODYL [Concomitant]
     Active Substance: BISACODYL
     Indication: Product used for unknown indication
     Dosage: 20 MG
     Route: 065
     Dates: start: 20220325, end: 20220325
  28. TRANSAMIN [Concomitant]
     Active Substance: TRANEXAMIC ACID
     Indication: Haematuria
     Dosage: 750 MG
     Route: 065
     Dates: start: 20220406
  29. BETAMETHASONE [Concomitant]
     Active Substance: BETAMETHASONE
     Indication: Product used for unknown indication
     Dosage: 4 MG
     Route: 065
     Dates: start: 20220225, end: 20220225
  30. BETAMETHASONE [Concomitant]
     Active Substance: BETAMETHASONE
     Dosage: 4 MG
     Route: 065
     Dates: start: 20220318, end: 20220318
  31. KYTRIL [Concomitant]
     Active Substance: GRANISETRON HYDROCHLORIDE
     Indication: Product used for unknown indication
     Dosage: 3 MG
     Route: 065
     Dates: start: 20220225, end: 20220225
  32. KYTRIL [Concomitant]
     Active Substance: GRANISETRON HYDROCHLORIDE
     Dosage: 3 MG
     Route: 065
     Dates: start: 20220318, end: 20220318
  33. NYSTATIN [Concomitant]
     Active Substance: NYSTATIN
     Indication: Stomatitis
     Dosage: 12 MILLILITER
     Route: 065
     Dates: start: 20220110, end: 20220124
  34. NYSTATIN [Concomitant]
     Active Substance: NYSTATIN
     Dosage: 12 MILLILITER
     Route: 065
     Dates: start: 20220224, end: 20220227
  35. DIMETHICONE [Concomitant]
     Active Substance: DIMETHICONE
     Indication: Gastric cancer
     Dosage: 240 MG
     Route: 065
     Dates: end: 20220224
  36. Hydrocortisone Acetate 1% [Concomitant]
     Indication: Rash maculo-papular
     Dosage: 1(UNK)
     Route: 065
     Dates: start: 20211230, end: 20220113
  37. SMECTA [Concomitant]
     Active Substance: MONTMORILLONITE
     Indication: Product used for unknown indication
     Route: 065
  38. Detosiv Sustained Release [Concomitant]
     Indication: Product used for unknown indication
     Route: 065
  39. Regrow [Concomitant]
     Indication: Product used for unknown indication
     Route: 065
  40. SINPHARDERM [Concomitant]
     Indication: Product used for unknown indication
     Route: 065
  41. Megest [Concomitant]
     Indication: Product used for unknown indication
     Route: 065
  42. TAMSULOSIN HYDROCHLORIDE [Concomitant]
     Active Substance: TAMSULOSIN HYDROCHLORIDE
     Indication: Product used for unknown indication
     Route: 065
  43. Cetazone [Concomitant]
     Indication: Product used for unknown indication
     Route: 065
  44. Ceflour [Concomitant]
     Indication: Product used for unknown indication
     Route: 065
  45. DEXTROSE MONOHYDRATE [Concomitant]
     Active Substance: DEXTROSE MONOHYDRATE
     Indication: Product used for unknown indication
     Route: 065
  46. NaCl(Dext-Saline 2.5%: 0.45% (Otsuka) Inj 500 mL /bag) [Concomitant]
     Indication: Product used for unknown indication
     Route: 065
  47. ACETAL [PARACETAMOL] [Concomitant]
     Indication: Product used for unknown indication
     Route: 065

REACTIONS (2)
  - Nephrolithiasis [Recovered/Resolved]
  - Gastric haemorrhage [Not Recovered/Not Resolved]

NARRATIVE: CASE EVENT DATE: 20220325
